FAERS Safety Report 17027961 (Version 1)
Quarter: 2019Q4

REPORT INFORMATION
  Report Type: Spontaneous
  Country: US (occurrence: US)
  Receive Date: 20191010
  Receipt Date: 20191010
  Transmission Date: 20200122
  Serious: Yes (Death)
  Sender: FDA-Public Use
  Company Number: None

PATIENT
  Age: 87 Year
  Sex: Female

DRUGS (1)
  1. SUTENT [Suspect]
     Active Substance: SUNITINIB MALATE
     Indication: BONE NEOPLASM
     Route: 048
     Dates: start: 20180208, end: 20190914

REACTIONS (1)
  - Death [None]

NARRATIVE: CASE EVENT DATE: 20191009
